FAERS Safety Report 12985498 (Version 2)
Quarter: 2016Q4

REPORT INFORMATION
  Report Type: Spontaneous
  Country: FR (occurrence: FR)
  Receive Date: 20161130
  Receipt Date: 20161208
  Transmission Date: 20170207
  Serious: Yes (Other)
  Sender: FDA-Public Use
  Company Number: FR-SUN PHARMACEUTICAL INDUSTRIES LTD-2016RR-128323

PATIENT
  Age: 90 Year
  Sex: Female

DRUGS (2)
  1. RAMIPRIL. [Suspect]
     Active Substance: RAMIPRIL
     Indication: HYPERTENSION
     Dosage: 5 MG
     Route: 065
  2. DIGOXIN. [Suspect]
     Active Substance: DIGOXIN
     Indication: HYPERTENSION
     Route: 065

REACTIONS (5)
  - Nephropathy [Recovering/Resolving]
  - Nausea [Unknown]
  - Renal artery stenosis [Recovering/Resolving]
  - Renal artery thrombosis [Recovering/Resolving]
  - Vomiting [Unknown]
